FAERS Safety Report 6223571-1 (Version None)
Quarter: 2009Q2

REPORT INFORMATION
  Report Type: 
  Country: None (occurrence: None)
  Receive Date: 20090610
  Receipt Date: 20090601
  Transmission Date: 20091009
  Serious: Yes (Hospitalization)
  Sender: FDA-Public Use
  Company Number: ADE2009-0651

PATIENT
  Age: 70 Year
  Sex: Female

DRUGS (2)
  1. RISPERIDONE [Suspect]
     Indication: CONDITION AGGRAVATED
  2. RISPERIDONE [Suspect]
     Indication: SCHIZOPHRENIA

REACTIONS (2)
  - HIGH DENSITY LIPOPROTEIN DECREASED [None]
  - HYPERTRIGLYCERIDAEMIA [None]
